FAERS Safety Report 9380932 (Version 1)
Quarter: 2013Q3

REPORT INFORMATION
  Report Type: Report from Study
  Country: FR (occurrence: FR)
  Receive Date: 20130703
  Receipt Date: 20130703
  Transmission Date: 20140515
  Serious: Yes (Hospitalization, Other)
  Sender: FDA-Public Use
  Company Number: FR-AMGEN-FRACT2013028840

PATIENT
  Age: 72 Year
  Sex: Female

DRUGS (8)
  1. ETANERCEPT [Suspect]
     Indication: RHEUMATOID ARTHRITIS
     Dosage: 50 MG, QWK
     Route: 065
     Dates: start: 200705, end: 200807
  2. ETANERCEPT [Suspect]
     Dosage: 25 MG, QWK
     Route: 065
     Dates: start: 200807, end: 200901
  3. VANCOMYCIN HCL [Suspect]
     Dosage: UNK
  4. PREDNISONE [Suspect]
     Dosage: 5 MG DAILY
     Dates: end: 200807
  5. PREDNISONE [Suspect]
     Dosage: 10 MG DAILY
     Dates: start: 200807
  6. LEFLUNOMIDE [Concomitant]
     Dosage: 20 MG, WEEKLY
     Dates: start: 199904, end: 200708
  7. LEFLUNOMIDE [Concomitant]
     Dosage: 20 MG DAILY
     Dates: start: 200807, end: 200901
  8. LEFLUNOMIDE [Concomitant]
     Dosage: 20 MG DAILY
     Dates: start: 200903

REACTIONS (7)
  - Renal failure [Not Recovered/Not Resolved]
  - Hepatic failure [Recovered/Resolved with Sequelae]
  - Enterobacter sepsis [Recovered/Resolved with Sequelae]
  - Urinary tract infection enterococcal [Recovered/Resolved with Sequelae]
  - Urinary tract infection [Recovered/Resolved]
  - Tuberculosis [Unknown]
  - Myocardial infarction [Recovered/Resolved]
